FAERS Safety Report 24973273 (Version 2)
Quarter: 2025Q1

REPORT INFORMATION
  Report Type: Report from Study
  Country: CA (occurrence: CA)
  Receive Date: 20250216
  Receipt Date: 20250219
  Transmission Date: 20250409
  Serious: Yes (Hospitalization)
  Sender: ABBVIE
  Company Number: CA-ABBVIE-6132148

PATIENT
  Age: 69 Year
  Sex: Female

DRUGS (14)
  1. RISANKIZUMAB [Suspect]
     Active Substance: RISANKIZUMAB
     Indication: Crohn^s disease
     Route: 058
     Dates: start: 20240530
  2. RISANKIZUMAB [Suspect]
     Active Substance: RISANKIZUMAB
     Indication: Crohn^s disease
     Route: 042
     Dates: start: 20240307, end: 20240529
  3. LOPERAMIDE [Concomitant]
     Active Substance: LOPERAMIDE
     Indication: Crohn^s disease
     Route: 048
     Dates: start: 2004
  4. COLESEVELAM [Concomitant]
     Active Substance: COLESEVELAM
     Indication: Crohn^s disease
     Route: 048
     Dates: start: 202402
  5. LEVOTHYROXINE [Concomitant]
     Active Substance: LEVOTHYROXINE
     Indication: Hypothyroidism
     Route: 048
     Dates: start: 2014
  6. SERTRALINE [Concomitant]
     Active Substance: SERTRALINE HYDROCHLORIDE
     Indication: Depression
     Route: 048
  7. RABEPRAZOLE [Concomitant]
     Active Substance: RABEPRAZOLE
     Indication: Duodenal ulcer
     Route: 048
  8. PREGABALIN [Concomitant]
     Active Substance: PREGABALIN
     Indication: Product used for unknown indication
     Route: 048
     Dates: start: 2013
  9. BUPROPION [Concomitant]
     Active Substance: BUPROPION
     Indication: Depression
     Route: 048
     Dates: start: 2013
  10. CANDESARTAN [Concomitant]
     Active Substance: CANDESARTAN
     Indication: Hypertension
     Route: 048
     Dates: start: 202302
  11. VITAMIN D3 [Concomitant]
     Active Substance: CHOLECALCIFEROL
     Indication: Routine health maintenance
     Route: 048
     Dates: start: 2014
  12. VITAMIN B12 [Concomitant]
     Active Substance: CYANOCOBALAMIN
     Indication: Vitamin B12 deficiency
     Route: 048
     Dates: start: 2014
  13. LINAGLIPTIN [Concomitant]
     Active Substance: LINAGLIPTIN
     Indication: Type 2 diabetes mellitus
     Route: 048
     Dates: start: 202305
  14. RABEPRAZOLE [Concomitant]
     Active Substance: RABEPRAZOLE
     Indication: Duodenal ulcer
     Route: 048
     Dates: start: 20221012

REACTIONS (3)
  - Abdominal wall abscess [Recovered/Resolved]
  - Abdominal wall abscess [Recovered/Resolved]
  - Abdominal wall abscess [Not Recovered/Not Resolved]

NARRATIVE: CASE EVENT DATE: 20240814
